FAERS Safety Report 14246439 (Version 1)
Quarter: 2017Q4

REPORT INFORMATION
  Report Type: Report from Study
  Country: US (occurrence: US)
  Receive Date: 20171204
  Receipt Date: 20171204
  Transmission Date: 20180321
  Serious: Yes (Other)
  Sender: FDA-Public Use
  Company Number: US-TESARO, INC-US-2017TSO04209

PATIENT

DRUGS (1)
  1. ZEJULA [Suspect]
     Active Substance: NIRAPARIB
     Indication: MALIGNANT PERITONEAL NEOPLASM
     Dosage: 200 MG, QD
     Route: 048
     Dates: start: 20171103

REACTIONS (5)
  - Insomnia [Not Recovered/Not Resolved]
  - Incorrect dose administered [Not Recovered/Not Resolved]
  - Contusion [Not Recovered/Not Resolved]
  - Appendicitis [Not Recovered/Not Resolved]
  - Epistaxis [Not Recovered/Not Resolved]
